FAERS Safety Report 13251601 (Version 2)
Quarter: 2017Q1

REPORT INFORMATION
  Report Type: Spontaneous
  Country: US (occurrence: US)
  Receive Date: 20170220
  Receipt Date: 20170331
  Transmission Date: 20170428
  Serious: No
  Sender: FDA-Public Use
  Company Number: US-ASTRAZENECA-2017SE15446

PATIENT
  Sex: Female

DRUGS (1)
  1. SYMBICORT [Suspect]
     Active Substance: BUDESONIDE\FORMOTEROL FUMARATE DIHYDRATE
     Dosage: 160/4.5 MCG INHALATION UNKNOWN
     Route: 055
     Dates: start: 20170130

REACTIONS (3)
  - Device failure [Unknown]
  - Circumstance or information capable of leading to medication error [Recovered/Resolved]
  - Dyspnoea [Unknown]
